FAERS Safety Report 12232607 (Version 2)
Quarter: 2017Q4

REPORT INFORMATION
  Report Type: Spontaneous
  Country: US (occurrence: US)
  Receive Date: 20160401
  Receipt Date: 20171101
  Transmission Date: 20180320
  Serious: Yes (Hospitalization)
  Sender: FDA-Public Use
  Company Number: US-BAUSCH-BL-2016-007200

PATIENT
  Age: 2 Year
  Sex: Male

DRUGS (1)
  1. POLYMYXIN B-AND TRIMETHOPRIM [Suspect]
     Active Substance: POLYMYXIN B SULFATE\TRIMETHOPRIM
     Indication: CONJUNCTIVITIS BACTERIAL
     Route: 065

REACTIONS (1)
  - Anaphylactic reaction [Recovered/Resolved]
